FAERS Safety Report 5211646-5 (Version None)
Quarter: 2007Q1

REPORT INFORMATION
  Report Type: 
  Country: None (occurrence: None)
  Receive Date: 20070116
  Receipt Date: 20070116
  Transmission Date: 20070707
  Serious: Yes (Other)
  Sender: FDA-Public Use
  Company Number: None

PATIENT

DRUGS (1)
  1. LEXAPRO [Suspect]

REACTIONS (6)
  - DIZZINESS [None]
  - ERYTHEMA [None]
  - INFUSION RELATED REACTION [None]
  - PARAESTHESIA [None]
  - PRURITUS [None]
  - URTICARIA [None]
